FAERS Safety Report 9256865 (Version 2)
Quarter: 2014Q1

REPORT INFORMATION
  Report Type: Spontaneous
  Country: US (occurrence: US)
  Receive Date: 20130426
  Receipt Date: 20140116
  Transmission Date: 20141002
  Serious: No
  Sender: FDA-Public Use
  Company Number: US-ASTRAZENECA-2013SE27316

PATIENT
  Age: 50 Year
  Sex: Female

DRUGS (13)
  1. NEXIUM [Suspect]
     Indication: GASTROOESOPHAGEAL REFLUX DISEASE
     Route: 048
  2. NEXIUM [Suspect]
     Indication: GASTROOESOPHAGEAL REFLUX DISEASE
     Route: 048
     Dates: start: 20040623
  3. PREVACID [Concomitant]
     Dates: start: 20050512
  4. PROTONIX [Concomitant]
  5. SINGULAIR [Concomitant]
     Route: 048
     Dates: start: 20040604
  6. INDOMETHACIN [Concomitant]
     Indication: HEADACHE
     Route: 048
     Dates: start: 20040720
  7. METFORMIN ER [Concomitant]
  8. PREDNISONE [Concomitant]
     Route: 048
     Dates: start: 20050503
  9. SKELAXIN [Concomitant]
     Route: 048
     Dates: start: 20050506
  10. TRAZODONE [Concomitant]
     Route: 048
     Dates: start: 20050523
  11. RAMIPRIL [Concomitant]
     Route: 048
     Dates: start: 20090814
  12. OXYCODONE/APAP [Concomitant]
     Dosage: 5-325MG
     Route: 048
     Dates: start: 20100502
  13. LEVAQUIN [Concomitant]
     Route: 048
     Dates: start: 20100706

REACTIONS (4)
  - Osteoporosis [Unknown]
  - Bone disorder [Unknown]
  - Lower limb fracture [Unknown]
  - Ankle fracture [Unknown]
